FAERS Safety Report 15959522 (Version 12)
Quarter: 2022Q1

REPORT INFORMATION
  Report Type: Spontaneous
  Country: GB (occurrence: GB)
  Receive Date: 20190214
  Receipt Date: 20220201
  Transmission Date: 20220424
  Serious: Yes (Death, Life-Threatening, Hospitalization, Disabling, Other)
  Sender: FDA-Public Use
  Company Number: None

PATIENT
  Age: 76 Year
  Sex: Male
  Weight: 69 kg

DRUGS (30)
  1. TACROLIMUS [Interacting]
     Active Substance: TACROLIMUS
     Indication: Prophylaxis against transplant rejection
     Dosage: 15 MG, BID
  2. BISOPROLOL [Interacting]
     Active Substance: BISOPROLOL
     Indication: Product used for unknown indication
  3. OMEPRAZOLE [Interacting]
     Active Substance: OMEPRAZOLE
     Indication: Product used for unknown indication
     Route: 048
  4. CLARITHROMYCIN [Interacting]
     Active Substance: CLARITHROMYCIN
     Indication: Lower respiratory tract infection
     Route: 042
     Dates: start: 20180127, end: 20180131
  5. TACROLIMUS [Interacting]
     Active Substance: TACROLIMUS
     Indication: Prophylaxis against transplant rejection
     Route: 048
     Dates: start: 20180127
  6. CEFUROXIME [Interacting]
     Active Substance: CEFUROXIME
     Indication: Product used for unknown indication
  7. NITROGLYCERIN [Interacting]
     Active Substance: NITROGLYCERIN
     Indication: Product used for unknown indication
  8. TACROLIMUS [Interacting]
     Active Substance: TACROLIMUS
     Indication: Renal transplant
     Route: 048
     Dates: start: 20180127, end: 20180131
  9. OMEPRAZOLE [Interacting]
     Active Substance: OMEPRAZOLE
     Indication: Duodenal ulcer
     Dosage: OMEPRAZOLE CHEMO IBERICA 20 MG DAILY
     Route: 048
  10. HYDROCORTISONE [Interacting]
     Active Substance: HYDROCORTISONE
     Indication: Product used for unknown indication
     Dosage: 50 MILLIGRAM, TID
     Route: 042
     Dates: start: 20180201
  11. GLICLAZIDE [Concomitant]
     Active Substance: GLICLAZIDE
     Dosage: MORNING
     Route: 048
  12. OMEPRAZOLE [Concomitant]
     Active Substance: OMEPRAZOLE
     Indication: Duodenal ulcer
     Dosage: MORNING
     Route: 048
  13. HERBALS\SENNOSIDES [Concomitant]
     Active Substance: HERBALS\SENNOSIDES
     Dosage: NIGHT
     Route: 048
  14. ALFACALCIDOL [Concomitant]
     Active Substance: ALFACALCIDOL
     Dosage: QD
     Route: 048
  15. BETAHISTINE [Concomitant]
     Active Substance: BETAHISTINE
     Dosage: MORNING
     Route: 048
  16. CHOLECALCIFEROL [Concomitant]
     Active Substance: CHOLECALCIFEROL
     Dosage: 20 NANOGRAM, QMO
     Route: 048
  17. PREDNISOLONE [Concomitant]
     Active Substance: PREDNISOLONE
     Dosage: MORNING
     Route: 048
  18. FUROSEMIDE [Concomitant]
     Active Substance: FUROSEMIDE
     Dosage: 80MG MORNING, 40MG 12PM
     Route: 048
  19. EPLERENONE [Concomitant]
     Active Substance: EPLERENONE
     Dosage: MORNING
     Route: 048
  20. ALLOPURINOL [Concomitant]
     Active Substance: ALLOPURINOL
     Dosage: 100 MG, QD
     Route: 048
  21. SENNA [Concomitant]
     Active Substance: SENNA LEAF\SENNOSIDES\SENNOSIDES A AND B
     Indication: Product used for unknown indication
     Dosage: 15 MG, QD NIGHT
     Route: 048
  22. DOXYCYCLINE [Concomitant]
     Active Substance: DOXYCYCLINE
     Indication: Product used for unknown indication
  23. GLUCAGON [Concomitant]
     Active Substance: GLUCAGON
     Indication: Product used for unknown indication
     Route: 030
     Dates: start: 20180130
  24. DEXTROSE [Concomitant]
     Active Substance: DEXTROSE
     Indication: Product used for unknown indication
     Dates: start: 20180130
  25. NITROGLYCERIN [Concomitant]
     Active Substance: NITROGLYCERIN
     Indication: Product used for unknown indication
  26. HYDROCORTISONE [Concomitant]
     Active Substance: HYDROCORTISONE
     Indication: Product used for unknown indication
     Dosage: 150 MG, TID
     Route: 042
     Dates: start: 20180201
  27. ALBUTEROL [Concomitant]
     Active Substance: ALBUTEROL
     Indication: Product used for unknown indication
  28. DEXTROSE [Concomitant]
     Active Substance: DEXTROSE
     Indication: Product used for unknown indication
     Dates: start: 20180130
  29. SENNOSIDES A AND B [Concomitant]
     Active Substance: SENNOSIDES A AND B
     Indication: Product used for unknown indication
     Route: 065
  30. CALCIUM CARBONATE [Concomitant]
     Active Substance: CALCIUM CARBONATE
     Indication: Product used for unknown indication
     Route: 048

REACTIONS (34)
  - Lower respiratory tract infection [Fatal]
  - Hypoglycaemia [Fatal]
  - Labelled drug-drug interaction medication error [Fatal]
  - Superinfection [Fatal]
  - Ascites [Fatal]
  - Rash [Fatal]
  - Pleural effusion [Fatal]
  - Dysphagia [Fatal]
  - Productive cough [Fatal]
  - Pyrexia [Fatal]
  - Rales [Fatal]
  - Pneumonia [Fatal]
  - Myocardial ischaemia [Fatal]
  - Transplant failure [Fatal]
  - Immunosuppressant drug level increased [Fatal]
  - Sepsis [Fatal]
  - Oesophageal carcinoma [Fatal]
  - Oesophageal perforation [Fatal]
  - Drug level increased [Fatal]
  - Toxicity to various agents [Fatal]
  - Drug interaction [Fatal]
  - Acute kidney injury [Fatal]
  - Multimorbidity [Fatal]
  - Swelling [Fatal]
  - Malaise [Fatal]
  - Cough [Fatal]
  - Renal impairment [Fatal]
  - Cardiomegaly [Fatal]
  - Inflammatory marker increased [Fatal]
  - Lung consolidation [Fatal]
  - Cardiac failure congestive [Fatal]
  - Soft tissue mass [Fatal]
  - Haemoptysis [Fatal]
  - Dyspnoea [Fatal]

NARRATIVE: CASE EVENT DATE: 20180127
